FAERS Safety Report 10825642 (Version 1)
Quarter: 2015Q1

REPORT INFORMATION
  Report Type: Report from Study
  Country: US (occurrence: US)
  Receive Date: 20150219
  Receipt Date: 20150219
  Transmission Date: 20150721
  Serious: Yes (Other)
  Sender: FDA-Public Use
  Company Number: US-ABBVIE-14K-163-1315718-00

PATIENT
  Sex: Male
  Weight: 86.26 kg

DRUGS (4)
  1. HUMIRA [Suspect]
     Active Substance: ADALIMUMAB
     Indication: ANKYLOSING SPONDYLITIS
     Route: 058
     Dates: start: 2003
  2. DILAUDID [Concomitant]
     Active Substance: HYDROMORPHONE HYDROCHLORIDE
     Indication: BACK PAIN
     Dosage: 80 TO 85MG
  3. HUMIRA [Suspect]
     Active Substance: ADALIMUMAB
     Dosage: MANY YEARS
     Route: 058
  4. MORPHINE [Concomitant]
     Active Substance: MORPHINE
     Indication: BACK PAIN

REACTIONS (11)
  - Therapeutic response unexpected [Not Recovered/Not Resolved]
  - Drug ineffective [Not Recovered/Not Resolved]
  - Spinal fusion surgery [Unknown]
  - Back pain [Not Recovered/Not Resolved]
  - Rash [Recovered/Resolved]
  - Intervertebral disc operation [Unknown]
  - Sleep apnoea syndrome [Not Recovered/Not Resolved]
  - Amnesia [Not Recovered/Not Resolved]
  - Insomnia [Not Recovered/Not Resolved]
  - Neck pain [Recovered/Resolved]
  - Road traffic accident [Recovered/Resolved]

NARRATIVE: CASE EVENT DATE: 2003
